FAERS Safety Report 15352855 (Version 1)
Quarter: 2018Q3

REPORT INFORMATION
  Report Type: Spontaneous
  Country: US (occurrence: US)
  Receive Date: 20180829
  Receipt Date: 20180829
  Transmission Date: 20181010
  Serious: Yes (Death)
  Sender: FDA-Public Use
  Company Number: None

PATIENT
  Age: 66 Year
  Sex: Male

DRUGS (2)
  1. MYCOPHENOLATE 250 MG WEST?WARD PHARMACEUTICAL CORP. [Suspect]
     Active Substance: MYCOPHENOLATE MOFETIL
     Indication: RENAL TRANSPLANT
     Route: 048
     Dates: start: 20180510, end: 20180625
  2. MYCOPHENOLATE 500 MG WEST?WARD PHARMACEUTICAL CORP. [Suspect]
     Active Substance: MYCOPHENOLATE MOFETIL
     Indication: CHRONIC KIDNEY DISEASE
     Route: 048
     Dates: start: 2018, end: 20180625

REACTIONS (2)
  - Septic shock [None]
  - Pneumonia [None]

NARRATIVE: CASE EVENT DATE: 20180625
